FAERS Safety Report 6781334-2 (Version None)
Quarter: 2010Q2

REPORT INFORMATION
  Report Type: 
  Country: None (occurrence: None)
  Receive Date: 20100621
  Receipt Date: 20100609
  Transmission Date: 20101027
  Serious: Yes (Hospitalization)
  Sender: FDA-Public Use
  Company Number: FR-NOVOPROD-310055

PATIENT
  Age: 65 Year
  Sex: Male

DRUGS (9)
  1. INSULATARD [Suspect]
     Indication: TYPE 2 DIABETES MELLITUS
     Dosage: UK/SC
     Dates: start: 20100402, end: 20100403
  2. ALDACTONE [Suspect]
     Dosage: UNK
     Route: 048
     Dates: start: 20100401, end: 20100403
  3. ALLOPURINOL [Suspect]
     Dosage: 300 MG, QD
     Route: 048
     Dates: end: 20100407
  4. CHONDROSULF [Suspect]
     Dosage: UNK
     Route: 048
     Dates: end: 20100407
  5. DIFFU K [Concomitant]
  6. FUROSEMIDE [Concomitant]
  7. TAHOR [Concomitant]
  8. VERAPAMIL [Concomitant]
  9. RILMENIDINE [Concomitant]

REACTIONS (5)
  - DERMATITIS EXFOLIATIVE [None]
  - EYELID OEDEMA [None]
  - RASH MACULAR [None]
  - RASH PUSTULAR [None]
  - SKIN EXFOLIATION [None]
